FAERS Safety Report 10626957 (Version 3)
Quarter: 2014Q4

REPORT INFORMATION
  Report Type: Report from Study
  Country: US (occurrence: US)
  Receive Date: 20141204
  Receipt Date: 20141208
  Transmission Date: 20150529
  Serious: Yes (Death, Hospitalization)
  Sender: FDA-Public Use
  Company Number: US-ABBVIE-12P-163-0924120-00

PATIENT
  Age: 57 Year
  Sex: Female

DRUGS (2)
  1. PREDNISONE. [Concomitant]
     Active Substance: PREDNISONE
     Indication: PRODUCT USED FOR UNKNOWN INDICATION
  2. HUMIRA [Suspect]
     Active Substance: ADALIMUMAB
     Indication: RHEUMATOID ARTHRITIS
     Route: 065
     Dates: start: 20080827, end: 20120410

REACTIONS (8)
  - Pulmonary fibrosis [Fatal]
  - Interstitial lung disease [Fatal]
  - Pneumonitis [Fatal]
  - Pneumonia [Fatal]
  - Pneumothorax [Fatal]
  - Chronic obstructive pulmonary disease [Fatal]
  - Mass [Fatal]
  - Acute respiratory failure [Fatal]

NARRATIVE: CASE EVENT DATE: 20101006
